FAERS Safety Report 4632609-4 (Version None)
Quarter: 2005Q2

REPORT INFORMATION
  Report Type: 
  Country: None (occurrence: None)
  Receive Date: 20050408
  Receipt Date: 20050331
  Transmission Date: 20051028
  Serious: Yes (Other)
  Sender: FDA-Public Use
  Company Number: 2005AL001249

PATIENT
  Age: 51 Year
  Sex: Female
  Weight: 70.3075 kg

DRUGS (5)
  1. CARBAMAZEPINE [Suspect]
     Indication: CONVULSION
     Dosage: 200 MG; TID; PO
     Route: 048
     Dates: start: 20040201, end: 20050301
  2. PAXIL [Concomitant]
  3. COZAAR [Concomitant]
  4. MULTI-VITAMINS [Concomitant]
  5. SEROQUEL [Concomitant]

REACTIONS (6)
  - ALANINE AMINOTRANSFERASE INCREASED [None]
  - ASPARTATE AMINOTRANSFERASE INCREASED [None]
  - CHEST DISCOMFORT [None]
  - DYSPNOEA [None]
  - HEPATIC CYST [None]
  - HEPATIC MASS [None]
